FAERS Safety Report 21868749 (Version 1)
Quarter: 2023Q1

REPORT INFORMATION
  Report Type: Report from Study
  Country: DE (occurrence: DE)
  Receive Date: 20230117
  Receipt Date: 20230117
  Transmission Date: 20230418
  Serious: Yes (Death, Hospitalization)
  Sender: FDA-Public Use
  Company Number: DE-BAYER-2022A163799

PATIENT
  Age: 76 Year
  Sex: Male

DRUGS (1)
  1. VENTAVIS [Suspect]
     Active Substance: ILOPROST
     Indication: Pulmonary arterial hypertension
     Dosage: 6ID
     Route: 055
     Dates: start: 20221114, end: 202211

REACTIONS (3)
  - Death [Fatal]
  - Fall [Unknown]
  - Facial bones fracture [Unknown]

NARRATIVE: CASE EVENT DATE: 20221123
